FAERS Safety Report 19977895 (Version 1)
Quarter: 2021Q4

REPORT INFORMATION
  Report Type: Spontaneous
  Country: US (occurrence: US)
  Receive Date: 20211020
  Receipt Date: 20211020
  Transmission Date: 20220303
  Serious: Yes (Disabling)
  Sender: FDA-Public Use
  Company Number: None

PATIENT
  Age: 29 Year
  Sex: Female
  Weight: 103.5 kg

DRUGS (3)
  1. CIPROFLOXACIN HYDROCHLORIDE [Suspect]
     Active Substance: CIPROFLOXACIN HYDROCHLORIDE
     Indication: Urinary tract infection
     Dosage: ?          QUANTITY:14 TABLET(S);
     Route: 048
     Dates: start: 20200802, end: 20200809
  2. L-METHYFOLATE [Concomitant]
  3. FISH OIL [Concomitant]
     Active Substance: FISH OIL

REACTIONS (18)
  - Neuropathy peripheral [None]
  - Muscular weakness [None]
  - Feeling abnormal [None]
  - Pain [None]
  - Amnesia [None]
  - Loss of employment [None]
  - Loss of personal independence in daily activities [None]
  - Diplopia [None]
  - Vision blurred [None]
  - Blindness [None]
  - Tremor [None]
  - Muscle twitching [None]
  - Speech disorder [None]
  - Gait disturbance [None]
  - Balance disorder [None]
  - Dyskinesia [None]
  - Collagen disorder [None]
  - Suicidal ideation [None]

NARRATIVE: CASE EVENT DATE: 20200802
